FAERS Safety Report 17739812 (Version 1)
Quarter: 2020Q2

REPORT INFORMATION
  Report Type: Spontaneous
  Country: US (occurrence: US)
  Receive Date: 20200501
  Receipt Date: 20200501
  Transmission Date: 20200714
  Serious: No
  Sender: FDA-Public Use
  Company Number: None

PATIENT
  Sex: Female

DRUGS (1)
  1. GLATIRAMTER ACETATE (12X1ML) [Suspect]
     Active Substance: GLATIRAMER ACETATE
     Indication: MULTIPLE SCLEROSIS
     Route: 058
     Dates: start: 201912, end: 202004

REACTIONS (6)
  - Chest discomfort [None]
  - Pain [None]
  - Product substitution issue [None]
  - Panic attack [None]
  - Hyperhidrosis [None]
  - Nausea [None]
